FAERS Safety Report 25686040 (Version 1)
Quarter: 2025Q3

REPORT INFORMATION
  Report Type: Spontaneous
  Country: US (occurrence: None)
  Receive Date: 20250815
  Receipt Date: 20250815
  Transmission Date: 20251020
  Serious: Yes (Other)
  Sender: FDA-CTU
  Company Number: None

PATIENT

DRUGS (1)
  1. TNKASE [Suspect]
     Active Substance: TENECTEPLASE
     Indication: Acute myocardial infarction
     Route: 042

REACTIONS (3)
  - Dose calculation error [None]
  - Incorrect dose administered [None]
  - Product label issue [None]

NARRATIVE: CASE EVENT DATE: 20250814
